FAERS Safety Report 6397375-3 (Version None)
Quarter: 2009Q4

REPORT INFORMATION
  Report Type: 
  Country: None (occurrence: None)
  Receive Date: 20091012
  Receipt Date: 20091006
  Transmission Date: 20100525
  Serious: Yes (Hospitalization)
  Sender: FDA-Public Use
  Company Number: US-GENENTECH-284382

PATIENT
  Sex: Male
  Weight: 84.807 kg

DRUGS (6)
  1. BEVACIZUMAB [Suspect]
     Indication: RENAL CANCER
     Dosage: UNK
     Dates: start: 20070417
  2. RAD001 [Suspect]
     Indication: RENAL CANCER
     Dosage: UNK
     Dates: start: 20070417
  3. PERIACTIN [Concomitant]
     Indication: DRUG USE FOR UNKNOWN INDICATION
     Dosage: 4 MG, BID
     Dates: start: 20090601
  4. FLOMAX [Concomitant]
     Indication: DRUG USE FOR UNKNOWN INDICATION
     Dosage: .4 MG, QD
  5. SIMVASTATIN [Concomitant]
     Indication: DRUG USE FOR UNKNOWN INDICATION
     Dosage: 20 MG, QD
     Dates: start: 20090601
  6. ATENOLOL [Concomitant]
     Indication: DRUG USE FOR UNKNOWN INDICATION
     Dosage: 25 MG, BID
     Dates: start: 20090601

REACTIONS (1)
  - HEMIPLEGIA [None]
